FAERS Safety Report 9249464 (Version 1)
Quarter: 2013Q2

REPORT INFORMATION
  Report Type: Spontaneous
  Country: US (occurrence: US)
  Receive Date: 20130423
  Receipt Date: 20130423
  Transmission Date: 20140414
  Serious: No
  Sender: FDA-Public Use
  Company Number: US-FOUGERA-2012FO001208

PATIENT
  Age: 88 Year
  Sex: Male
  Weight: 61.24 kg

DRUGS (6)
  1. DESONIDE [Suspect]
     Indication: PRURITUS
     Route: 061
     Dates: start: 20120405, end: 20120605
  2. DESONIDE [Suspect]
     Indication: PRURITUS
  3. CLOBETASOL PROPIONATE [Concomitant]
     Indication: PRURITUS
     Route: 061
     Dates: start: 20120405, end: 20120605
  4. FLUTICASONE PROPIONATE W/SALMETEROL [Concomitant]
     Indication: CHRONIC OBSTRUCTIVE PULMONARY DISEASE
  5. PRAVASTATIN [Concomitant]
     Indication: BLOOD CHOLESTEROL ABNORMAL
     Route: 048
     Dates: start: 201006
  6. ATENOLOL [Concomitant]
     Indication: BLOOD PRESSURE INCREASED
     Route: 048
     Dates: start: 201006

REACTIONS (1)
  - Therapeutic response decreased [Not Recovered/Not Resolved]
